FAERS Safety Report 11235675 (Version 4)
Quarter: 2015Q3

REPORT INFORMATION
  Report Type: Report from Study
  Country: FR (occurrence: FR)
  Receive Date: 20150702
  Receipt Date: 20150914
  Transmission Date: 20151125
  Serious: Yes (Hospitalization, Other)
  Sender: FDA-Public Use
  Company Number: FR-BRISTOL-MYERS SQUIBB COMPANY-BMS-2015-042019

PATIENT
  Age: 32 Year
  Sex: Male
  Weight: 75 kg

DRUGS (5)
  1. ZELITREX [Concomitant]
     Active Substance: VALACYCLOVIR HYDROCHLORIDE
     Indication: PROPHYLAXIS
     Dosage: 500 MG, BID
     Route: 048
     Dates: start: 20150504
  2. WELLVONE [Concomitant]
     Active Substance: ATOVAQUONE
     Indication: PNEUMOCYSTIS TEST POSITIVE
     Dosage: 1500 MG, QD
     Route: 048
     Dates: start: 20150504
  3. SOLU-MEDROL [Concomitant]
     Active Substance: METHYLPREDNISOLONE SODIUM SUCCINATE
     Indication: PREMEDICATION
     Dosage: 1 DF, UNK
     Route: 065
  4. ORACILLIN                          /00001802/ [Concomitant]
     Indication: PROPHYLAXIS
     Dosage: 2 DF, QD
     Route: 048
     Dates: start: 20150504
  5. NIVOLUMAB [Suspect]
     Active Substance: NIVOLUMAB
     Indication: HODGKIN^S DISEASE
     Dosage: 270 MG, UNK
     Route: 065
     Dates: start: 20150312, end: 20150629

REACTIONS (3)
  - Platelet count decreased [Unknown]
  - Cerebellar syndrome [Recovering/Resolving]
  - Confusional state [Recovered/Resolved]

NARRATIVE: CASE EVENT DATE: 20150711
